FAERS Safety Report 6296744-X (Version None)
Quarter: 2009Q3

REPORT INFORMATION
  Report Type: 
  Country: None (occurrence: None)
  Receive Date: 20090804
  Receipt Date: 20090728
  Transmission Date: 20100115
  Serious: Yes (Hospitalization)
  Sender: FDA-Public Use
  Company Number: NL-TEVA-204272ISR

PATIENT
  Sex: Male
  Weight: 68 kg

DRUGS (14)
  1. METHOTREXATE [Suspect]
     Indication: BURKITT'S LYMPHOMA
     Dosage: 5950MG
     Route: 042
     Dates: start: 20090609
  2. METHOTREXATE [Interacting]
     Route: 037
  3. ESOMEPRAZOLE MAGNESIUM [Interacting]
     Route: 042
     Dates: start: 20090608
  4. CYTARABINE [Concomitant]
     Route: 037
  5. LENOGRASTIM [Concomitant]
  6. DOXORUBICIN HCL [Concomitant]
     Route: 042
  7. PREDNISONE TAB [Concomitant]
  8. RITUXIMAB [Concomitant]
     Route: 042
  9. CYCLOPHOSPHAMIDE [Concomitant]
  10. CIPROFLAXACIN [Concomitant]
     Dates: start: 20090610, end: 20090622
  11. AMPHOTERICIN B [Concomitant]
     Dates: start: 20090610, end: 20090611
  12. LORAZEPAM [Concomitant]
     Route: 042
     Dates: start: 20090611, end: 20090622
  13. CALCIUM FOLINATE [Concomitant]
     Dates: start: 20060610
  14. CALCIUM FOLINATE [Concomitant]

REACTIONS (2)
  - DRUG INTERACTION [None]
  - RENAL FUNCTION TEST ABNORMAL [None]
